FAERS Safety Report 17247406 (Version 2)
Quarter: 2020Q1

REPORT INFORMATION
  Report Type: Spontaneous
  Country: IT (occurrence: IT)
  Receive Date: 20200108
  Receipt Date: 20200204
  Transmission Date: 20200409
  Serious: Yes (Hospitalization, Other)
  Sender: FDA-Public Use
  Company Number: IT-MYLANLABS-2020M1000352

PATIENT
  Age: 17 Year
  Sex: Female

DRUGS (1)
  1. LORAZEPAM. [Suspect]
     Active Substance: LORAZEPAM
     Indication: PRODUCT USED FOR UNKNOWN INDICATION
     Dosage: 4 MILLIGRAM, TOTAL
     Route: 048

REACTIONS (3)
  - Intentional product misuse [Unknown]
  - Sopor [Unknown]
  - Drug abuse [Unknown]

NARRATIVE: CASE EVENT DATE: 20190416
